FAERS Safety Report 12791033 (Version 5)
Quarter: 2020Q1

REPORT INFORMATION
  Report Type: Spontaneous
  Country: US (occurrence: US)
  Receive Date: 20160929
  Receipt Date: 20200128
  Transmission Date: 20200409
  Serious: Yes (Hospitalization, Other)
  Sender: FDA-Public Use
  Company Number: US-PFIZER INC-2016452423

PATIENT
  Age: 66 Year
  Sex: Female
  Weight: 73 kg

DRUGS (10)
  1. VITAMIN D3 [Concomitant]
     Active Substance: CHOLECALCIFEROL
     Dosage: 1000 IU, 1X/DAY [ONCE A DAY]
     Dates: start: 201604
  2. VITAMIN C [Concomitant]
     Active Substance: ASCORBIC ACID
     Indication: VITAMIN SUPPLEMENTATION
     Dosage: 500 MG, 1X/DAY [ONCE A DAY]
     Route: 048
  3. XGEVA [Concomitant]
     Active Substance: DENOSUMAB
     Indication: BONE DISORDER
     Dosage: 120 MG, MONTHLY [ONCE A MONTH]
     Dates: start: 201210
  4. FASLODEX [Suspect]
     Active Substance: FULVESTRANT
     Indication: HORMONE SUPPRESSION THERAPY
     Dosage: 500 MG, MONTHLY (250MG IN EACH BUTTOCKS, 1 X 1 MONTHS)
     Route: 030
     Dates: start: 201604
  5. CALCIUM [Concomitant]
     Active Substance: CALCIUM
     Indication: SUPPLEMENTATION THERAPY
     Dosage: 1000 MG, 1X/DAY [ONCE A DAY]
  6. VITAMIN D3 [Concomitant]
     Active Substance: CHOLECALCIFEROL
     Dosage: UNK
     Dates: start: 201210
  7. VITAMIN B COMPLEX [Concomitant]
     Active Substance: CYANOCOBALAMIN\DEXPANTHENOL\NIACINAMIDE\PYRIDOXINE HYDROCHLORIDE\RIBOFLAVIN 5^-PHOSPHATE SODIUM\THIAMINE HYDROCHLORIDE\VITAMIN B COMPLEX
     Indication: VITAMIN SUPPLEMENTATION
     Dosage: 1 DF, 1X/DAY [1 CAPSULE (DF), ONCE A DAY]
  8. IBRANCE [Suspect]
     Active Substance: PALBOCICLIB
     Indication: BREAST CANCER STAGE IV
     Dosage: 125 MG, CYCLIC (1 CAPSULE ONCE DAILY FOR 21 DAYS THEN 7 DAYS OFF)
     Dates: start: 20160428
  9. MAGNESIUM [Concomitant]
     Active Substance: MAGNESIUM
     Indication: SUPPLEMENTATION THERAPY
     Dosage: 250 MG, 1X/DAY [ONCE A DAY]
     Dates: start: 201009
  10. XGEVA [Concomitant]
     Active Substance: DENOSUMAB
     Dosage: 120 MG, EVERY 3 MONTHS [ONCE EVERY 3 MONTHS]
     Dates: start: 201706

REACTIONS (15)
  - White blood cell count decreased [Not Recovered/Not Resolved]
  - Femur fracture [Recovered/Resolved]
  - Fatigue [Unknown]
  - Stomatitis [Recovering/Resolving]
  - Arthralgia [Not Recovered/Not Resolved]
  - Neoplasm progression [Unknown]
  - Musculoskeletal stiffness [Unknown]
  - Neutropenia [Not Recovered/Not Resolved]
  - Alopecia [Not Recovered/Not Resolved]
  - Constipation [Not Recovered/Not Resolved]
  - Pain in extremity [Unknown]
  - Onychoclasis [Not Recovered/Not Resolved]
  - Mouth ulceration [Recovered/Resolved]
  - Dry skin [Not Recovered/Not Resolved]
  - Bone pain [Unknown]

NARRATIVE: CASE EVENT DATE: 2016
